FAERS Safety Report 18611119 (Version 1)
Quarter: 2020Q4

REPORT INFORMATION
  Report Type: Spontaneous
  Country: US (occurrence: US)
  Receive Date: 20201214
  Receipt Date: 20201214
  Transmission Date: 20210114
  Serious: No
  Sender: FDA-Public Use
  Company Number: US-PFIZER INC-2020487816

PATIENT
  Age: 63 Year
  Sex: Male

DRUGS (2)
  1. MEKTOVI [Suspect]
     Active Substance: BINIMETINIB
     Indication: MALIGNANT MELANOMA
     Dosage: 30 MG, 2X/DAY
     Route: 048
     Dates: start: 20201112
  2. BRAFTOVI [Suspect]
     Active Substance: ENCORAFENIB
     Indication: MALIGNANT MELANOMA
     Dosage: 225 MG, DAILY(QAM)
     Route: 048
     Dates: start: 20201112

REACTIONS (4)
  - Peripheral swelling [Unknown]
  - Lymphadenopathy [Unknown]
  - Rash [Unknown]
  - Skin disorder [Unknown]
